FAERS Safety Report 4277784-9 (Version None)
Quarter: 2004Q1

REPORT INFORMATION
  Report Type: 
  Country: None (occurrence: None)
  Receive Date: 20040121
  Receipt Date: 20030306
  Transmission Date: 20041129
  Serious: Yes (Other)
  Sender: FDA-Public Use
  Company Number: 2003-02-2459

PATIENT
  Sex: Male
  Weight: 79 kg

DRUGS (4)
  1. SUBUTEX [Suspect]
     Indication: DRUG DEPENDENCE
     Dosage: SEE IMAGE
     Route: 060
     Dates: start: 20010604, end: 20010604
  2. SUBUTEX [Suspect]
     Indication: DRUG DEPENDENCE
     Dosage: SEE IMAGE
     Route: 060
     Dates: start: 20010605, end: 20010606
  3. SUBUTEX [Suspect]
     Indication: DRUG DEPENDENCE
     Dosage: SEE IMAGE
     Route: 060
     Dates: start: 20010607, end: 20010607
  4. SUBUTEX [Suspect]
     Indication: DRUG DEPENDENCE
     Dosage: SEE IMAGE
     Route: 060
     Dates: start: 20010608, end: 20011112

REACTIONS (1)
  - PSYCHOTIC DISORDER [None]
